FAERS Safety Report 9216923 (Version 1)
Quarter: 2013Q2

REPORT INFORMATION
  Report Type: Spontaneous
  Country: US (occurrence: None)
  Receive Date: 20130405
  Receipt Date: 20130405
  Transmission Date: 20140414
  Serious: Yes (Death)
  Sender: FDA-Public Use
  Company Number: None

PATIENT
  Age: 79 Year
  Sex: Female
  Weight: 148.55 kg

DRUGS (2)
  1. AZITHROMYCIN [Suspect]
     Indication: SINUSITIS
     Dosage: 2 TAB 1ST DAY, 1 TAB. FOR A TOTAL OF 5 DAYS THERAPY P.O
     Route: 048
     Dates: start: 20130218
  2. AZITHROMYCIN [Suspect]
     Indication: BRONCHITIS
     Dosage: 2 TAB 1ST DAY, 1 TAB. FOR A TOTAL OF 5 DAYS THERAPY P.O
     Route: 048
     Dates: start: 20130218

REACTIONS (1)
  - Sudden death [None]
